FAERS Safety Report 9815552 (Version 3)
Quarter: 2014Q1

REPORT INFORMATION
  Report Type: Spontaneous
  Country: JP (occurrence: JP)
  Receive Date: 20140114
  Receipt Date: 20140204
  Transmission Date: 20141002
  Serious: Yes (Life-Threatening)
  Sender: FDA-Public Use
  Company Number: JP-JNJFOC-20130817312

PATIENT
  Age: 62 Year
  Sex: Female

DRUGS (8)
  1. TRAMCET [Suspect]
     Indication: CANCER PAIN
     Dosage: ONE AS NEEDED
     Route: 048
     Dates: start: 20130823, end: 20130823
  2. TRAMCET [Suspect]
     Indication: CANCER PAIN
     Dosage: 1 PER 1 DAY
     Route: 048
     Dates: start: 20130822, end: 20130823
  3. NOVAMIN [Suspect]
     Indication: PROPHYLAXIS OF NAUSEA AND VOMITING
     Dosage: 1 PER 1 DAY
     Route: 048
     Dates: start: 20130823, end: 20130823
  4. NOVAMIN [Suspect]
     Indication: PROPHYLAXIS OF NAUSEA AND VOMITING
     Dosage: 1 PER 1 DAY
     Route: 048
     Dates: start: 20130823, end: 20130823
  5. LASIX [Concomitant]
     Indication: MALIGNANT PLEURAL EFFUSION
     Dosage: 1 PER 1 DAY
     Route: 048
     Dates: start: 20130528, end: 20131126
  6. BASEN [Concomitant]
     Indication: TYPE 2 DIABETES MELLITUS
     Dosage: 1 PER 1 DAY
     Route: 048
     Dates: end: 20131126
  7. FEROTYM [Concomitant]
     Indication: IRON DEFICIENCY ANAEMIA
     Dosage: 1 PER 1 DAY
     Route: 048
     Dates: end: 20131015
  8. HUMALOG MIX [Concomitant]
     Indication: TYPE 2 DIABETES MELLITUS
     Dosage: UNKNOWN DOSE USING SLIDING SCALE
     Route: 058

REACTIONS (8)
  - Apnoea [Recovered/Resolved]
  - Altered state of consciousness [Recovered/Resolved]
  - Nausea [Recovered/Resolved]
  - Off label use [Unknown]
  - Somnolence [Recovered/Resolved]
  - Cold sweat [Recovered/Resolved]
  - Inappropriate schedule of drug administration [Unknown]
  - Hypertension [Recovered/Resolved]
